FAERS Safety Report 9485787 (Version 1)
Quarter: 2013Q3

REPORT INFORMATION
  Report Type: Spontaneous
  Country: US (occurrence: None)
  Receive Date: 20130827
  Receipt Date: 20130827
  Transmission Date: 20140515
  Serious: No
  Sender: FDA-Public Use
  Company Number: None

PATIENT
  Age: 52 Year
  Sex: Male

DRUGS (1)
  1. XELJANZ 5MG BID PFIZER [Suspect]
     Dosage: 047
     Dates: start: 20130801

REACTIONS (2)
  - Colitis [None]
  - Headache [None]
